FAERS Safety Report 17358300 (Version 1)
Quarter: 2020Q1

REPORT INFORMATION
  Report Type: Spontaneous
  Country: GB (occurrence: GB)
  Receive Date: 20200201
  Receipt Date: 20200201
  Transmission Date: 20200409
  Serious: Yes (Hospitalization)
  Sender: FDA-Public Use
  Company Number: GB-TEVA-2020-GB-1177690

PATIENT
  Age: 92 Year
  Sex: Female
  Weight: 47.2 kg

DRUGS (4)
  1. RIVAROXABAN [Concomitant]
     Active Substance: RIVAROXABAN
     Dosage: 1 EVERY DAY WITH FOOD. 15MG AND 20MG
     Dates: start: 20190206
  2. LANSOPRAZOLE. [Concomitant]
     Active Substance: LANSOPRAZOLE
     Dosage: 30 MILLIGRAM DAILY; MORNING
     Dates: start: 20190408
  3. TRAMADOL. [Concomitant]
     Active Substance: TRAMADOL
     Dosage: 1-2 FOUR TIMES A DAY
     Dates: start: 20190430
  4. BISOPROLOL [Suspect]
     Active Substance: BISOPROLOL
     Indication: ATRIAL FIBRILLATION
     Dosage: 2.5 MG
     Dates: start: 20171108, end: 20190501

REACTIONS (1)
  - Unresponsive to stimuli [Recovering/Resolving]

NARRATIVE: CASE EVENT DATE: 20190430
